FAERS Safety Report 8963035 (Version 1)
Quarter: 2012Q4

REPORT INFORMATION
  Report Type: Spontaneous
  Country: KR (occurrence: None)
  Receive Date: 20121205
  Receipt Date: 20121205
  Transmission Date: 20130627
  Serious: Yes (Other)
  Sender: FDA-Public Use
  Company Number: 2012KR007253

PATIENT
  Age: 64 Year
  Sex: Female
  Weight: 61.7 kg

DRUGS (7)
  1. ALOXI [Suspect]
     Indication: PROPHYLAXIS OF NAUSEA AND VOMITING
     Route: 042
     Dates: start: 20091007, end: 20091007
  2. DOXORUBICIN (DOXORUBICIN) (DOXORUBICIN) [Concomitant]
  3. ENDOXAN (CYCLOPHOSPHAMIDE) [Concomitant]
  4. EMEND (APREPITANT) [Concomitant]
  5. DEXAMETHASONE (DEXAMETHASONE) [Concomitant]
  6. LANSOPRAZOLE (LANSOPRAZOLE) [Concomitant]
  7. MEXOLON (METOCLOPRAMIDE HYDROCHLORIDE) [Concomitant]

REACTIONS (1)
  - Nausea [None]
